FAERS Safety Report 16963705 (Version 1)
Quarter: 2019Q4

REPORT INFORMATION
  Report Type: Spontaneous
  Country: DE (occurrence: DE)
  Receive Date: 20191025
  Receipt Date: 20191025
  Transmission Date: 20200122
  Serious: Yes (Other)
  Sender: FDA-Public Use
  Company Number: DE-US-PROVELL PHARMACEUTICALS LLC-E2B_90071564

PATIENT
  Sex: Female

DRUGS (2)
  1. EUTHYROX NF [Suspect]
     Active Substance: LEVOTHYROXINE SODIUM
     Indication: PRODUCT USED FOR UNKNOWN INDICATION
     Dates: start: 201908
  2. EUTHYROX NF [Suspect]
     Active Substance: LEVOTHYROXINE SODIUM
     Dates: start: 201908

REACTIONS (7)
  - Asphyxia [Unknown]
  - Pharyngeal swelling [Unknown]
  - Hyperhidrosis [Unknown]
  - Fatigue [Unknown]
  - Constipation [Unknown]
  - Dry skin [Unknown]
  - Ocular discomfort [Unknown]

NARRATIVE: CASE EVENT DATE: 2019
